FAERS Safety Report 9720967 (Version 3)
Quarter: 2014Q2

REPORT INFORMATION
  Report Type: Report from Study
  Country: CA (occurrence: CA)
  Receive Date: 20131129
  Receipt Date: 20140627
  Transmission Date: 20141212
  Serious: Yes (Other)
  Sender: FDA-Public Use
  Company Number: CA-JNJFOC-20131115387

PATIENT
  Sex: Male
  Weight: 84 kg

DRUGS (13)
  1. REMICADE [Suspect]
     Indication: RHEUMATOID ARTHRITIS
     Route: 042
     Dates: start: 20060726
  2. OMEPRAZOLE [Concomitant]
     Route: 065
  3. HYDROXYCHLOROQUINE [Concomitant]
     Route: 065
  4. ASA [Concomitant]
     Route: 065
  5. ADVAIR [Concomitant]
     Route: 065
  6. ALENDRONATE [Concomitant]
     Route: 065
  7. VENTOLIN [Concomitant]
     Route: 065
  8. DOXAZOSIN [Concomitant]
     Route: 065
  9. SPIRIVA [Concomitant]
     Route: 065
  10. AZATHIOPRINE [Concomitant]
     Route: 065
  11. ELAVIL [Concomitant]
     Route: 065
  12. HYDROXYZINE [Concomitant]
     Route: 065
  13. FELODIPINE [Concomitant]
     Route: 065

REACTIONS (1)
  - Device occlusion [Recovered/Resolved]
